FAERS Safety Report 19253755 (Version 1)
Quarter: 2021Q2

REPORT INFORMATION
  Report Type: Spontaneous
  Country: BR (occurrence: BR)
  Receive Date: 20210513
  Receipt Date: 20210513
  Transmission Date: 20210717
  Serious: Yes (Other)
  Sender: FDA-Public Use
  Company Number: BR-ROCHE-2824129

PATIENT
  Sex: Female
  Weight: 62.6 kg

DRUGS (12)
  1. FAULDCARBO [Suspect]
     Active Substance: CARBOPLATIN
     Indication: OVARIAN CANCER
     Route: 065
  2. PURAN [Concomitant]
     Active Substance: LEVOTHYROXINE SODIUM
  3. MOTILIUM [Concomitant]
     Active Substance: DOMPERIDONE
  4. AVASTIN [Suspect]
     Active Substance: BEVACIZUMAB
     Indication: OVARIAN CANCER
     Route: 065
  5. ROSUVASTATIN. [Concomitant]
     Active Substance: ROSUVASTATIN
  6. VONAU FLASH [Concomitant]
     Active Substance: ONDANSETRON HYDROCHLORIDE
  7. ONTAX [Suspect]
     Active Substance: PACLITAXEL
     Indication: OVARIAN CANCER
     Route: 065
  8. OMEGA 3 [Concomitant]
     Active Substance: OMEGA-3 FATTY ACIDS
     Dosage: 2 TABLETS PER DAY
  9. RANITIDINE. [Concomitant]
     Active Substance: RANITIDINE
  10. LOSARTAN. [Concomitant]
     Active Substance: LOSARTAN
  11. DECADRON [Concomitant]
     Active Substance: DEXAMETHASONE
  12. LEXOTAN [Concomitant]
     Active Substance: BROMAZEPAM
     Dosage: 1 OR 2 TABLETS

REACTIONS (5)
  - Erythema [Unknown]
  - Ill-defined disorder [Unknown]
  - Phlebitis [Unknown]
  - Neoplasm [Unknown]
  - Oedema [Unknown]
